FAERS Safety Report 20926078 (Version 1)
Quarter: 2022Q2

REPORT INFORMATION
  Report Type: Spontaneous
  Country: US (occurrence: None)
  Receive Date: 20220607
  Receipt Date: 20220607
  Transmission Date: 20220721
  Serious: No
  Sender: FDA-Public Use
  Company Number: None

PATIENT
  Age: 62 Year
  Sex: Female
  Weight: 100.24 kg

DRUGS (1)
  1. TALTZ [Suspect]
     Active Substance: IXEKIZUMAB
     Indication: Psoriatic arthropathy
     Dosage: OTHER FREQUENCY : WEEK 12;?INJECT SOMG (1 PEN) SUBCUTANEOUSLY AT WEEK 12 AS?DIRECTED.?
     Route: 058
     Dates: start: 201909

REACTIONS (1)
  - Cardiac disorder [None]
